FAERS Safety Report 8885883 (Version 1)
Quarter: 2012Q4

REPORT INFORMATION
  Report Type: 
  Country: BD (occurrence: BD)
  Receive Date: 20121105
  Receipt Date: 20121105
  Transmission Date: 20130627
  Serious: Yes (Death)
  Sender: FDA-Public Use
  Company Number: PHHY2012BD100608

PATIENT
  Age: 77 Year
  Sex: Female

DRUGS (1)
  1. ACLASTA [Suspect]
     Indication: OSTEOPOROSIS
     Dosage: Once yearly
     Route: 042
     Dates: start: 20111129

REACTIONS (1)
  - Death [Fatal]
